FAERS Safety Report 5763883-9 (Version None)
Quarter: 2008Q2

REPORT INFORMATION
  Report Type: 
  Country: None (occurrence: None)
  Receive Date: 20080606
  Receipt Date: 20080606
  Transmission Date: 20081010
  Serious: Yes (Life-Threatening)
  Sender: FDA-Public Use
  Company Number: None

PATIENT
  Age: 61 Day
  Sex: Male
  Weight: 1.1 kg

DRUGS (1)
  1. ATIVAN [Suspect]
     Indication: ANXIOLYTIC THERAPY
     Dosage: 0.1 MG/KG TWICE  IV BOLUS
     Route: 040
     Dates: start: 20080601, end: 20080601

REACTIONS (5)
  - APNOEIC ATTACK [None]
  - BRADYCARDIA [None]
  - CONVULSION [None]
  - MYOTONIA [None]
  - OXYGEN SATURATION DECREASED [None]
